FAERS Safety Report 8837667 (Version 3)
Quarter: 2014Q2

REPORT INFORMATION
  Report Type: Report from Study
  Country: US (occurrence: US)
  Receive Date: 20121012
  Receipt Date: 20140414
  Transmission Date: 20141212
  Serious: Yes (Other)
  Sender: FDA-Public Use
  Company Number: US-UCBSA-068439

PATIENT
  Age: 5 Month
  Sex: Female
  Weight: 3.32 kg

DRUGS (4)
  1. KEPPRA XR [Suspect]
     Indication: EPILEPSY
     Route: 064
     Dates: start: 20110701, end: 20120308
  2. PRENATAL VITAMINS [Concomitant]
     Indication: PREGNANCY
     Dosage: ONE PILL ONCE DAILY
     Route: 064
     Dates: start: 20110701, end: 20120308
  3. FOLIC ACID [Concomitant]
     Indication: PREGNANCY
     Route: 064
     Dates: start: 20110714, end: 20120308
  4. COLACE [Concomitant]
     Indication: FAECES HARD
     Dosage: 2 PILLS ONCE DAILY
     Route: 064

REACTIONS (6)
  - Urinary tract infection [Unknown]
  - Meningitis aseptic [Unknown]
  - Lethargy [Recovering/Resolving]
  - Gastrooesophageal reflux disease [Unknown]
  - Sinusitis [Unknown]
  - Foetal exposure during pregnancy [Recovered/Resolved]
